FAERS Safety Report 26196863 (Version 1)
Quarter: 2025Q4

REPORT INFORMATION
  Report Type: Spontaneous
  Country: AU (occurrence: AU)
  Receive Date: 20251224
  Receipt Date: 20251224
  Transmission Date: 20260117
  Serious: Yes (Other)
  Sender: ELI LILLY AND COMPANY
  Company Number: AU-ELI_LILLY_AND_COMPANY-AU202512021042

PATIENT
  Age: 43 Year
  Sex: Female

DRUGS (10)
  1. FLUOXETINE HYDROCHLORIDE [Suspect]
     Active Substance: FLUOXETINE HYDROCHLORIDE
     Indication: Product used for unknown indication
     Dosage: 40 MG, EACH MORNING (40 MG MANE)
     Route: 065
  2. LEVOTHYROXINE SODIUM [Suspect]
     Active Substance: LEVOTHYROXINE SODIUM
     Indication: Product used for unknown indication
     Dosage: 75 UG, EACH MORNING (75MCG, QD MANE)
     Route: 065
  3. CLOZARIL [Suspect]
     Active Substance: CLOZAPINE
     Indication: Product used for unknown indication
     Dosage: 300 MG, EACH EVENING
     Route: 065
     Dates: start: 2009
  4. METFORMIN HYDROCHLORIDE [Suspect]
     Active Substance: METFORMIN HYDROCHLORIDE
     Indication: Product used for unknown indication
     Dosage: 250 MG, EACH MORNING (250 MG MANE)
     Route: 065
  5. METFORMIN HYDROCHLORIDE [Suspect]
     Active Substance: METFORMIN HYDROCHLORIDE
     Dosage: 500 MG, EACH EVENING  (500 MG NOCTE)
     Route: 065
  6. ERGOCALCIFEROL [Suspect]
     Active Substance: ERGOCALCIFEROL
     Indication: Product used for unknown indication
     Dosage: 1 DOSAGE FORM, EACH MORNING (ONE TABLET MANE)
     Route: 065
  7. DOCUSATE SODIUM - SENNOSIDES [Suspect]
     Active Substance: DOCUSATE SODIUM\SENNOSIDES
     Indication: Product used for unknown indication
     Dosage: 2 DOSAGE FORM, EACH EVENING  (TWO TABLET NOCTE)
     Route: 065
  8. ASCORBIC ACID\FERROUS SULFATE [Suspect]
     Active Substance: ASCORBIC ACID\FERROUS SULFATE
     Indication: Product used for unknown indication
     Dosage: UNK, EACH MORNING
     Route: 065
  9. COLLAGEN [Suspect]
     Active Substance: COLLAGEN
     Indication: Product used for unknown indication
     Dosage: UNK, UNKNOWN
     Route: 065
  10. MOVICOL [Suspect]
     Active Substance: POLYETHYLENE GLYCOL 3350\POTASSIUM CHLORIDE\SODIUM BICARBONATE\SODIUM CHLORIDE
     Indication: Product used for unknown indication
     Dosage: UNK, BID (ONE TO TWO SACHET, BD)
     Route: 048

REACTIONS (5)
  - Hallucination, auditory [Unknown]
  - Dyspnoea exertional [Unknown]
  - Left ventricular hypertrophy [Unknown]
  - Pericardial effusion [Unknown]
  - Dizziness [Unknown]

NARRATIVE: CASE EVENT DATE: 20240701
